FAERS Safety Report 12952015 (Version 1)
Quarter: 2016Q4

REPORT INFORMATION
  Report Type: Spontaneous
  Country: US (occurrence: US)
  Receive Date: 20161117
  Receipt Date: 20161117
  Transmission Date: 20170207
  Serious: No
  Sender: FDA-Public Use
  Company Number: US-PFIZER INC-2016529347

PATIENT
  Age: 88 Year
  Sex: Female
  Weight: 73.47 kg

DRUGS (1)
  1. SUTENT [Suspect]
     Active Substance: SUNITINIB MALATE
     Indication: NEOPLASM MALIGNANT
     Dosage: 50 MG, CYCLIC (DAILY X28, 2 WEEK REST)
     Route: 048
     Dates: start: 20161005

REACTIONS (2)
  - Dyspepsia [Unknown]
  - Diarrhoea [Unknown]
